FAERS Safety Report 17286536 (Version 1)
Quarter: 2020Q1

REPORT INFORMATION
  Report Type: Spontaneous
  Country: US (occurrence: US)
  Receive Date: 20191230
  Receipt Date: 20191230
  Transmission Date: 20200409
  Serious: Yes (Hospitalization)
  Sender: FDA-Public Use
  Company Number: None

PATIENT
  Age: 2 Year
  Sex: Female

DRUGS (1)
  1. TRACLEER [Suspect]
     Active Substance: BOSENTAN
     Indication: PULMONARY ARTERIAL HYPERTENSION
     Route: 048
     Dates: start: 20190607

REACTIONS (5)
  - Cough [None]
  - Pulmonary vein stenosis [None]
  - Pyrexia [None]
  - Pulmonary congestion [None]
  - Vomiting [None]

NARRATIVE: CASE EVENT DATE: 20191215
